FAERS Safety Report 7357025-6 (Version None)
Quarter: 2011Q1

REPORT INFORMATION
  Report Type: 
  Country: None (occurrence: None)
  Receive Date: 20110310
  Receipt Date: 20110310
  Transmission Date: 20110831
  Serious: No
  Sender: FDA-Public Use
  Company Number: None

PATIENT
  Age: 50 Year
  Sex: Female
  Weight: 77.1115 kg

DRUGS (3)
  1. ZYRTEC [Suspect]
     Indication: HEADACHE
     Dosage: 10MG 1 TAB DAILY PO
     Route: 048
     Dates: start: 20101001, end: 20101201
  2. ZYRTEC [Suspect]
     Indication: EYE PRURITUS
     Dosage: 10MG 1 TAB DAILY PO
     Route: 048
     Dates: start: 20101001, end: 20101201
  3. ZYRTEC [Suspect]
     Indication: RHINORRHOEA
     Dosage: 10MG 1 TAB DAILY PO
     Route: 048
     Dates: start: 20101001, end: 20101201

REACTIONS (2)
  - RASH GENERALISED [None]
  - PRURITUS [None]
